FAERS Safety Report 8623516-0 (Version None)
Quarter: 2012Q3

REPORT INFORMATION
  Report Type: 
  Country: None (occurrence: None)
  Receive Date: 20120824
  Receipt Date: 20120824
  Transmission Date: 20120928
  Serious: Yes (Other)
  Sender: FDA-Public Use
  Company Number: None

PATIENT
  Sex: Female
  Weight: 74.8435 kg

DRUGS (1)
  1. AVELOX [Suspect]
     Indication: ACUTE TONSILLITIS
     Dosage: 1 TABLET ONCE DAILY
     Dates: start: 20120215

REACTIONS (6)
  - SYNCOPE [None]
  - FALL [None]
  - HEADACHE [None]
  - DYSSTASIA [None]
  - LOSS OF CONSCIOUSNESS [None]
  - HEAD INJURY [None]
